FAERS Safety Report 8819281 (Version 2)
Quarter: 2012Q4

REPORT INFORMATION
  Report Type: 
  Country: US (occurrence: US)
  Receive Date: 20121002
  Receipt Date: 20121203
  Transmission Date: 20130627
  Serious: No
  Sender: FDA-Public Use
  Company Number: US-PFIZER INC-2012241077

PATIENT
  Age: 60 Year
  Sex: Female
  Weight: 86 kg

DRUGS (7)
  1. ATIVAN [Suspect]
     Indication: ANXIETY
     Dosage: 0.5 mg, 2x/day as needed
     Dates: start: 201204, end: 201209
  2. ATIVAN [Suspect]
     Indication: INSOMNIA
  3. METOPROLOL [Concomitant]
     Dosage: UNK
  4. AMLODIPINE [Concomitant]
     Dosage: UNK
  5. KLOR-CON [Concomitant]
     Dosage: UNK
  6. CITALOPRAM [Concomitant]
     Indication: DEPRESSION
     Dosage: UNK
  7. LOSARTAN [Concomitant]
     Dosage: UNK

REACTIONS (7)
  - Drug ineffective [Not Recovered/Not Resolved]
  - Insomnia [Unknown]
  - Hangover [Unknown]
  - Laziness [Unknown]
  - Restlessness [Unknown]
  - Asthenia [Unknown]
  - Fatigue [Unknown]
